FAERS Safety Report 7492206-2 (Version None)
Quarter: 2011Q2

REPORT INFORMATION
  Report Type: 
  Country: None (occurrence: None)
  Receive Date: 20110519
  Receipt Date: 20101108
  Transmission Date: 20111010
  Serious: No
  Sender: FDA-Public Use
  Company Number: US-NOVEN-ALL1-2010-05906

PATIENT
  Age: 6 Year
  Sex: Female

DRUGS (2)
  1. DAYTRANA [Suspect]
     Dosage: UNK MG, UNKNOWN (^5 MG^)
     Route: 062
     Dates: start: 20090901
  2. INTUNIV [Suspect]
     Dosage: 3 MG, UNKNOWN
     Route: 048
     Dates: start: 20100101

REACTIONS (3)
  - DRUG DOSE OMISSION [None]
  - VOMITING [None]
  - SOMNOLENCE [None]
